FAERS Safety Report 16326723 (Version 1)
Quarter: 2019Q2

REPORT INFORMATION
  Report Type: Spontaneous
  Country: ES (occurrence: ES)
  Receive Date: 20190517
  Receipt Date: 20190517
  Transmission Date: 20190711
  Serious: Yes (Other)
  Sender: FDA-Public Use
  Company Number: ES-ELI_LILLY_AND_COMPANY-ES201905007036

PATIENT
  Age: 84 Year
  Sex: Female
  Weight: 59.8 kg

DRUGS (1)
  1. FORSTEO 250UG/ML [Suspect]
     Active Substance: TERIPARATIDE
     Indication: SPINAL COMPRESSION FRACTURE
     Route: 058
     Dates: start: 20171220, end: 2018

REACTIONS (6)
  - Muscle rigidity [Recovering/Resolving]
  - Parkinsonism [Recovering/Resolving]
  - Dysphonia [Recovering/Resolving]
  - Gait disturbance [Recovering/Resolving]
  - Mood altered [Recovering/Resolving]
  - Off label use [Unknown]

NARRATIVE: CASE EVENT DATE: 20171220
